FAERS Safety Report 25330591 (Version 1)
Quarter: 2025Q2

REPORT INFORMATION
  Report Type: Spontaneous
  Country: US (occurrence: None)
  Receive Date: 20250518
  Receipt Date: 20250518
  Transmission Date: 20250717
  Serious: Yes (Hospitalization, Disabling)
  Sender: FDA-CTU
  Company Number: None

PATIENT
  Sex: Female

DRUGS (1)
  1. VENLAFAXINE HYDROCHLORIDE [Suspect]
     Active Substance: VENLAFAXINE HYDROCHLORIDE

REACTIONS (14)
  - Headache [None]
  - Product dose omission issue [None]
  - Dizziness [None]
  - Anxiety [None]
  - Fear [None]
  - Insomnia [None]
  - Palpitations [None]
  - Acne [None]
  - Nausea [None]
  - Withdrawal syndrome [None]
  - Histamine intolerance [None]
  - Erythema [None]
  - Pruritus [None]
  - Dry skin [None]
